FAERS Safety Report 9235473 (Version 1)
Quarter: 2013Q1

REPORT INFORMATION
  Report Type: Spontaneous
  Country: US (occurrence: None)
  Receive Date: 20121031
  Receipt Date: 20121031
  Transmission Date: 20140127
  Serious: No
  Sender: FDA-Public Use
  Company Number: PHEH2012US011656

PATIENT
  Age: 49 Year
  Sex: Female

DRUGS (2)
  1. GILENYA [Suspect]
     Indication: MULTIPLE SCLEROSIS
     Route: 048
     Dates: start: 20120521
  2. KLONOPIN (CLONAZEPAM), 1MG [Concomitant]

REACTIONS (3)
  - Fatigue [None]
  - Gait disturbance [None]
  - Oedema peripheral [None]
